FAERS Safety Report 12131609 (Version 1)
Quarter: 2016Q1

REPORT INFORMATION
  Report Type: Spontaneous
  Country: DE (occurrence: DE)
  Receive Date: 20160301
  Receipt Date: 20160301
  Transmission Date: 20160526
  Serious: Yes (Other)
  Sender: FDA-Public Use
  Company Number: DE-CIPLA LTD.-2016DE01492

PATIENT

DRUGS (3)
  1. CISPLATIN. [Suspect]
     Active Substance: CISPLATIN
     Indication: TRANSITIONAL CELL CARCINOMA
     Dosage: 70 MG/M2, WITH GEMCITABINE AT DAY 1
     Route: 065
     Dates: start: 20050726
  2. GEFITINIB [Suspect]
     Active Substance: GEFITINIB
     Indication: TRANSITIONAL CELL CARCINOMA
     Dosage: 250 MG, QD
     Route: 048
  3. GEMCITABINE [Suspect]
     Active Substance: GEMCITABINE\GEMCITABINE HYDROCHLORIDE
     Indication: TRANSITIONAL CELL CARCINOMA
     Dosage: 1250 MG/M2, WITH CISPLATIN AT DAY 1
     Route: 065
     Dates: start: 20050726

REACTIONS (5)
  - Leukopenia [Unknown]
  - Discomfort [Unknown]
  - Rash [Unknown]
  - Dyspnoea [Unknown]
  - Nausea [Recovered/Resolved]
